FAERS Safety Report 11663352 (Version 3)
Quarter: 2019Q2

REPORT INFORMATION
  Report Type: Spontaneous
  Country: DK (occurrence: DK)
  Receive Date: 20151027
  Receipt Date: 20190402
  Transmission Date: 20190711
  Serious: Yes (Hospitalization)
  Sender: FDA-Public Use
  Company Number: DK-ACCORD-034815

PATIENT
  Age: 60 Year
  Sex: Female

DRUGS (13)
  1. ESOMEPRAZOLE/ESOMEPRAZOLE MAGNESIUM/ESOMEPRAZOLE SODIUM [Concomitant]
  2. METOCLOPRAMIDE. [Concomitant]
     Active Substance: METOCLOPRAMIDE
  3. ONDANSETRON [Concomitant]
     Active Substance: ONDANSETRON
  4. HYDROCHLOROTHIAZIDE. [Concomitant]
     Active Substance: HYDROCHLOROTHIAZIDE
  5. CITALOPRAM [Concomitant]
     Active Substance: CITALOPRAM HYDROBROMIDE
  6. TRAMADOL. [Concomitant]
     Active Substance: TRAMADOL
  7. LISINOPRIL. [Concomitant]
     Active Substance: LISINOPRIL
  8. SALICYLATE SODIUM/SALICYLIC ACID/SALICYLIC ACID TRIETHANOLAMINE [Concomitant]
  9. PARACETAMOL [Concomitant]
     Active Substance: ACETAMINOPHEN
  10. CARBOPLATIN. [Suspect]
     Active Substance: CARBOPLATIN
     Indication: OVARIAN CANCER
     Dosage: AREA UNDER CURVE 5-6 MG X MIN X ML^-1, EVERY THIRD WEEK
  11. CLOPIDOGREL [Suspect]
     Active Substance: CLOPIDOGREL BISULFATE
     Indication: PRODUCT USED FOR UNKNOWN INDICATION
  12. PACLITAXEL/PACLITAXEL LIPOSOME [Interacting]
     Active Substance: PACLITAXEL
     Indication: OVARIAN CANCER
     Dosage: EVERY THIRD WEEK
     Dates: start: 20081128, end: 20090130
  13. SIMVASTATIN. [Concomitant]
     Active Substance: SIMVASTATIN

REACTIONS (5)
  - Drug interaction [Unknown]
  - Nausea [Unknown]
  - Drug clearance decreased [Unknown]
  - Neuropathy peripheral [Unknown]
  - Vomiting [Unknown]

NARRATIVE: CASE EVENT DATE: 2008
